FAERS Safety Report 6582320-8 (Version None)
Quarter: 2010Q1

REPORT INFORMATION
  Report Type: 
  Country: None (occurrence: None)
  Receive Date: 20100216
  Receipt Date: 20100202
  Transmission Date: 20100710
  Serious: Yes (Hospitalization)
  Sender: FDA-Public Use
  Company Number: FR-KINGPHARMUSA00001-K201000117

PATIENT
  Age: 63 Year
  Sex: Male

DRUGS (1)
  1. ALTACE [Suspect]
     Indication: HYPERTENSION
     Dosage: 5 MG, BID
     Route: 048
     Dates: start: 20100110, end: 20100117

REACTIONS (6)
  - BLOOD BILIRUBIN INCREASED [None]
  - BLOOD CREATINE PHOSPHOKINASE MB INCREASED [None]
  - ERYTHEMA [None]
  - FIBRIN D DIMER INCREASED [None]
  - HYPERSENSITIVITY [None]
  - PRURITUS [None]
